FAERS Safety Report 7110909-6 (Version None)
Quarter: 2010Q4

REPORT INFORMATION
  Report Type: 
  Country: None (occurrence: None)
  Receive Date: 20101112
  Receipt Date: 20101027
  Transmission Date: 20110411
  Serious: Yes (Hospitalization)
  Sender: FDA-Public Use
  Company Number: 1-17244337

PATIENT
  Age: 69 Year
  Sex: Female

DRUGS (10)
  1. QUALAQUIN [Suspect]
     Indication: MUSCLE SPASMS
     Dosage: AS NEEDED, ORAL
     Route: 048
     Dates: start: 20080804, end: 20080809
  2. UNIPHYL [Concomitant]
  3. SINGULAIR [Concomitant]
  4. ACTOS [Concomitant]
  5. QUINAPRIL HCL [Concomitant]
  6. FUROSEMIDE [Concomitant]
  7. (UNSPECIFIED) INHALER SOLUTION [Concomitant]
  8. ALBUTEROL [Concomitant]
  9. CLONAZEPAM [Concomitant]
  10. POTASSIUM CHLORIDE [Concomitant]

REACTIONS (12)
  - ANXIETY [None]
  - DRUG HYPERSENSITIVITY [None]
  - EMOTIONAL DISTRESS [None]
  - FEAR [None]
  - GRIEF REACTION [None]
  - HAEMATURIA [None]
  - MENTAL DISORDER [None]
  - NERVOUSNESS [None]
  - PAIN [None]
  - RECTAL HAEMORRHAGE [None]
  - SHOCK [None]
  - THROMBOCYTOPENIA [None]
